FAERS Safety Report 10595808 (Version 1)
Quarter: 2014Q4

REPORT INFORMATION
  Report Type: Spontaneous
  Country: US (occurrence: US)
  Receive Date: 20141120
  Receipt Date: 20141120
  Transmission Date: 20150529
  Serious: Yes (Other)
  Sender: FDA-Public Use
  Company Number: US-PFIZER INC-2014317719

PATIENT
  Sex: Male

DRUGS (3)
  1. GABAPENTIN. [Interacting]
     Active Substance: GABAPENTIN
     Dosage: UNK
  2. CHANTIX [Suspect]
     Active Substance: VARENICLINE TARTRATE
     Indication: SMOKING CESSATION THERAPY
     Dosage: UNK
  3. SIMVASTATIN. [Interacting]
     Active Substance: SIMVASTATIN
     Indication: BLOOD CHOLESTEROL ABNORMAL
     Dosage: UNK

REACTIONS (6)
  - Drug interaction [Unknown]
  - Nausea [Unknown]
  - Dysgeusia [Unknown]
  - Limb crushing injury [Unknown]
  - Drug ineffective [Unknown]
  - Abnormal dreams [Unknown]
